FAERS Safety Report 7473384-8 (Version None)
Quarter: 2011Q1

REPORT INFORMATION
  Report Type: 
  Country: None (occurrence: None)
  Receive Date: 20110302
  Receipt Date: 20100818
  Transmission Date: 20110831
  Serious: Yes (Hospitalization, Other)
  Sender: FDA-Public Use
  Company Number: 163-21880-10063189

PATIENT
  Age: 54 Year
  Sex: Female
  Weight: 71.6683 kg

DRUGS (6)
  1. PROCRIT [Concomitant]
  2. VELCADE [Concomitant]
  3. REVLIMID [Suspect]
     Indication: MULTIPLE MYELOMA
     Dosage: 25 MG, 14 DAYS, PO
     Route: 048
     Dates: start: 20100517, end: 20100701
  4. ALOXI [Concomitant]
  5. DEXAMETHASONE [Concomitant]
  6. COUMADIN [Concomitant]

REACTIONS (10)
  - NEUROPATHY PERIPHERAL [None]
  - DEHYDRATION [None]
  - DECREASED APPETITE [None]
  - OEDEMA PERIPHERAL [None]
  - NERVOUSNESS [None]
  - URINARY TRACT INFECTION [None]
  - WEIGHT DECREASED [None]
  - SKIN EXFOLIATION [None]
  - DYSGEUSIA [None]
  - MUSCULOSKELETAL CHEST PAIN [None]
